FAERS Safety Report 5042536-9 (Version None)
Quarter: 2006Q2

REPORT INFORMATION
  Report Type: 
  Country: None (occurrence: None)
  Receive Date: 20060627
  Receipt Date: 20060623
  Transmission Date: 20061013
  Serious: Yes (Other)
  Sender: FDA-Public Use
  Company Number: GB-2006-009832

PATIENT
  Age: 31 Year
  Sex: Female
  Weight: 50 kg

DRUGS (2)
  1. YASMIN [Suspect]
     Indication: POLYCYSTIC OVARIES
     Dosage: 1 TAB (S), 1X/DAY, ORAL
     Route: 048
     Dates: start: 20051031, end: 20060315
  2. DICLOFENAC [Concomitant]

REACTIONS (3)
  - COUGH [None]
  - PEAK EXPIRATORY FLOW RATE ABNORMAL [None]
  - WHEEZING [None]
